FAERS Safety Report 8231882-3 (Version None)
Quarter: 2012Q1

REPORT INFORMATION
  Report Type: 
  Country: None (occurrence: None)
  Receive Date: 20120323
  Receipt Date: 20120309
  Transmission Date: 20120608
  Serious: Yes (Hospitalization, Other)
  Sender: FDA-Public Use
  Company Number: JP-ROCHE-1041421

PATIENT
  Sex: Male
  Weight: 56 kg

DRUGS (4)
  1. XELODA [Suspect]
     Indication: RECTAL CANCER
     Route: 048
     Dates: start: 20111214, end: 20111227
  2. GLYCYRON [Concomitant]
     Indication: HEPATIC FUNCTION ABNORMAL
     Route: 048
     Dates: start: 20111125, end: 20120129
  3. ADALAT CC [Concomitant]
     Indication: HYPERTENSION
     Route: 048
     Dates: start: 20010101
  4. URSO 250 [Concomitant]
     Indication: HEPATIC FUNCTION ABNORMAL
     Route: 048
     Dates: start: 20111125, end: 20120129

REACTIONS (7)
  - TREMOR [None]
  - RENAL IMPAIRMENT [None]
  - DYSPHAGIA [None]
  - NAUSEA [None]
  - DEHYDRATION [None]
  - FEBRILE NEUTROPENIA [None]
  - PANCYTOPENIA [None]
